FAERS Safety Report 8721855 (Version 2)
Quarter: 2012Q4

REPORT INFORMATION
  Report Type: 
  Country: CA (occurrence: CA)
  Receive Date: 20120814
  Receipt Date: 20121030
  Transmission Date: 20130627
  Serious: Yes (Other)
  Sender: FDA-Public Use
  Company Number: PHHY2012CA069470

PATIENT
  Age: 78 None
  Sex: Female

DRUGS (2)
  1. ACLASTA [Suspect]
     Indication: OSTEOPOROSIS
     Route: 042
     Dates: start: 20100811
  2. ACLASTA [Suspect]
     Route: 042
     Dates: start: 20110823

REACTIONS (3)
  - Fall [Unknown]
  - Spinal fracture [Unknown]
  - Patella fracture [Unknown]
